FAERS Safety Report 21038312 (Version 1)
Quarter: 2022Q3

REPORT INFORMATION
  Report Type: Spontaneous
  Country: US (occurrence: US)
  Receive Date: 20220704
  Receipt Date: 20220704
  Transmission Date: 20221027
  Serious: Yes (Other)
  Sender: FDA-Public Use
  Company Number: US-SA-SAC20220629001272

PATIENT
  Age: 50 Year
  Sex: Female

DRUGS (1)
  1. ZANTAC [Suspect]
     Active Substance: RANITIDINE HYDROCHLORIDE
     Indication: Dyspepsia
     Dosage: UNK UNK, QW
     Dates: start: 199801, end: 201601

REACTIONS (3)
  - Throat cancer [Recovered/Resolved]
  - Lung carcinoma cell type unspecified stage I [Recovered/Resolved]
  - Colorectal cancer stage I [Recovered/Resolved]

NARRATIVE: CASE EVENT DATE: 20191101
